FAERS Safety Report 19314449 (Version 1)
Quarter: 2021Q2

REPORT INFORMATION
  Report Type: Spontaneous
  Country: US (occurrence: US)
  Receive Date: 20210527
  Receipt Date: 20210527
  Transmission Date: 20210717
  Serious: Yes (Other)
  Sender: FDA-Public Use
  Company Number: US-HIKMA PHARMACEUTICALS USA INC.-US-H14001-21-54508

PATIENT
  Age: 18 Year
  Sex: Female

DRUGS (5)
  1. FOLINIC ACID [Suspect]
     Active Substance: LEUCOVORIN
     Indication: OSTEOSARCOMA METASTATIC
     Dosage: HIGH DOSE (WEEK 4,5,9 AND 10 OF THERAPY)
     Route: 065
  2. CISPLATIN. [Suspect]
     Active Substance: CISPLATIN
     Indication: OSTEOSARCOMA METASTATIC
     Dosage: ON WEEKS 1 AND 6 (TWO CONSECUTIVE DAYS)
     Route: 065
  3. DOXORUBICIN [Suspect]
     Active Substance: DOXORUBICIN
     Indication: OSTEOSARCOMA METASTATIC
     Dosage: ON WEEKS 1 AND 6 (TWO CONSECUTIVE DAYS)
     Route: 065
  4. METHOTREXATE. [Suspect]
     Active Substance: METHOTREXATE
     Indication: OSTEOSARCOMA METASTATIC
     Dosage: 3 G/M2?WEEK 4,5,9 AND 10 OF THERAPY (25% OF PROTOCOL DOSE)
     Route: 065
  5. MANNITOL. [Concomitant]
     Active Substance: MANNITOL
     Indication: BALANCE DISORDER
     Dosage: UNKNOWN
     Route: 065

REACTIONS (1)
  - Mucosal inflammation [Unknown]
